FAERS Safety Report 4331852-1 (Version None)
Quarter: 2004Q2

REPORT INFORMATION
  Report Type: 
  Country: None (occurrence: None)
  Receive Date: 20040401
  Receipt Date: 20040401
  Transmission Date: 20050107
  Serious: Yes (Other)
  Sender: FDA-Public Use
  Company Number: None

PATIENT
  Age: 25 Year
  Sex: Female
  Weight: 102.5129 kg

DRUGS (4)
  1. ORTHO CYCLEN-28 [Suspect]
     Indication: ACNE
     Dosage: QD PO 21D/MONTH
     Route: 048
     Dates: start: 20040101
  2. ORTHO CYCLEN-28 [Suspect]
     Indication: CONTRACEPTION
     Dosage: QD PO 21D/MONTH
     Route: 048
     Dates: start: 20040101
  3. ORTHO CYCLEN-28 [Suspect]
     Indication: DEPRESSION
     Dosage: QD PO 21D/MONTH
     Route: 048
     Dates: start: 20040101
  4. ZOLOFT [Concomitant]

REACTIONS (5)
  - ACNE [None]
  - DEPRESSION [None]
  - DISEASE RECURRENCE [None]
  - MENSTRUATION IRREGULAR [None]
  - PHARMACEUTICAL PRODUCT COMPLAINT [None]
